FAERS Safety Report 4303239-9 (Version None)
Quarter: 2004Q1

REPORT INFORMATION
  Report Type: 
  Country: None (occurrence: None)
  Receive Date: 20040223
  Receipt Date: 20040203
  Transmission Date: 20041129
  Serious: Yes (Death)
  Sender: FDA-Public Use
  Company Number: 2004AP00629

PATIENT
  Age: 21 Year
  Sex: Male

DRUGS (2)
  1. MORPHINE [Suspect]
     Indication: DRUG ABUSER
  2. METHAMPHETAMINE HCL [Suspect]
     Indication: DRUG ABUSER

REACTIONS (8)
  - BRAIN OEDEMA [None]
  - DRUG ABUSER [None]
  - DRUG INTERACTION [None]
  - DRUG TOXICITY [None]
  - HYPERTHERMIA [None]
  - LYMPHADENOPATHY [None]
  - PULMONARY OEDEMA [None]
  - TONSILLITIS [None]
